FAERS Safety Report 5764949-X (Version None)
Quarter: 2008Q2

REPORT INFORMATION
  Report Type: 
  Country: None (occurrence: None)
  Receive Date: 20080602
  Receipt Date: 20071126
  Transmission Date: 20081010
  Serious: Yes (Other)
  Sender: FDA-Public Use
  Company Number: WAES 0711USA04871

PATIENT
  Sex: Male

DRUGS (1)
  1. EMEND [Suspect]
     Indication: PROPHYLAXIS
     Dosage: 40 MG/1X/PO
     Route: 048
     Dates: start: 20071101

REACTIONS (1)
  - BRADYCARDIA [None]
